FAERS Safety Report 5012995-6 (Version None)
Quarter: 2006Q2

REPORT INFORMATION
  Report Type: 
  Country: None (occurrence: None)
  Receive Date: 20060530
  Receipt Date: 20060523
  Transmission Date: 20061013
  Serious: Yes (Hospitalization)
  Sender: FDA-Public Use
  Company Number: 2006UW09889

PATIENT
  Age: 28 Year
  Sex: Female

DRUGS (4)
  1. ACCOLATE [Suspect]
     Indication: ASTHMA
     Route: 048
  2. ADVAIR DISKUS 100/50 [Suspect]
     Indication: ASTHMA
     Dosage: 500/50
  3. DUONEB [Suspect]
     Indication: ASTHMA
  4. ALBUTEROL SULFATE AUTOHALER [Suspect]
     Indication: ASTHMA
     Route: 055

REACTIONS (1)
  - ASTHMA [None]
